FAERS Safety Report 25429809 (Version 2)
Quarter: 2025Q3

REPORT INFORMATION
  Report Type: Spontaneous
  Country: US (occurrence: None)
  Receive Date: 20250612
  Receipt Date: 20250712
  Transmission Date: 20251021
  Serious: Yes (Other)
  Sender: AXSOME THERAPEUTICS, INC.
  Company Number: US-Axsome Therapeutics, Inc.-AXS202506-000976

PATIENT
  Age: 50 Year
  Sex: Female

DRUGS (4)
  1. AUVELITY [Interacting]
     Active Substance: BUPROPION HYDROCHLORIDE\DEXTROMETHORPHAN HYDROBROMIDE
     Indication: Major depression
     Route: 048
  2. AUVELITY [Interacting]
     Active Substance: BUPROPION HYDROCHLORIDE\DEXTROMETHORPHAN HYDROBROMIDE
     Dosage: RECEIVED PRESCRIPTION REFILL ON 13-MAY-2025
     Route: 048
  3. ZOLOFT [Interacting]
     Active Substance: SERTRALINE HYDROCHLORIDE
     Indication: Product used for unknown indication
     Route: 065
  4. EFFEXOR [Concomitant]
     Active Substance: VENLAFAXINE HYDROCHLORIDE
     Indication: Product used for unknown indication
     Route: 065

REACTIONS (10)
  - Loss of consciousness [Unknown]
  - Road traffic accident [Unknown]
  - Feeling abnormal [Unknown]
  - Disorientation [Unknown]
  - Memory impairment [Unknown]
  - Mania [Unknown]
  - Somnolence [Unknown]
  - Labelled drug-drug interaction issue [Unknown]
  - Inappropriate schedule of product administration [Unknown]
  - Off label use [Unknown]
